FAERS Safety Report 15166129 (Version 1)
Quarter: 2018Q3

REPORT INFORMATION
  Report Type: Spontaneous
  Country: ZA (occurrence: ZA)
  Receive Date: 20180719
  Receipt Date: 20180719
  Transmission Date: 20181010
  Serious: Yes (Death)
  Sender: FDA-Public Use
  Company Number: ZA-PFIZER INC-2018286580

PATIENT
  Age: 78 Year
  Sex: Female

DRUGS (9)
  1. BETMIGA [Suspect]
     Active Substance: MIRABEGRON
     Dosage: 25 MG, UNK
  2. ECOTRIN [Suspect]
     Active Substance: ASPIRIN
     Dosage: 81 MG, UNK
  3. BILOCOR [Suspect]
     Active Substance: BISOPROLOL FUMARATE
     Dosage: 5 MG, UNK
  4. LOMANOR [Suspect]
     Active Substance: AMLODIPINE BESYLATE
     Dosage: 5 MG, UNK
  5. PURICOS [Suspect]
     Active Substance: ALLOPURINOL
     Dosage: 300 MG, UNK
  6. ELTROXIN [Suspect]
     Active Substance: LEVOTHYROXINE
     Dosage: 100 UG, UNK
  7. ATACAND [Suspect]
     Active Substance: CANDESARTAN CILEXETIL
     Dosage: 16 MG, UNK
  8. BETMIGA [Suspect]
     Active Substance: MIRABEGRON
     Dosage: 50 MG, UNK
  9. RISNIA [Suspect]
     Active Substance: RISPERIDONE
     Dosage: 0.5 MG, UNK

REACTIONS (1)
  - Death [Fatal]
